FAERS Safety Report 20200088 (Version 1)
Quarter: 2021Q4

REPORT INFORMATION
  Report Type: Report from Study
  Country: US (occurrence: US)
  Receive Date: 20211217
  Receipt Date: 20211217
  Transmission Date: 20220303
  Serious: Yes (Other)
  Sender: FDA-Public Use
  Company Number: US-MYLANLABS-2021M1093748

PATIENT
  Age: 49 Year
  Sex: Male

DRUGS (3)
  1. PIPERACILLIN SODIUM\TAZOBACTAM SODIUM [Suspect]
     Active Substance: PIPERACILLIN SODIUM\TAZOBACTAM SODIUM
     Indication: Pneumonia pseudomonal
     Dosage: UNK
     Route: 065
  2. AZTREONAM [Suspect]
     Active Substance: AZTREONAM
     Indication: Pneumonia pseudomonal
     Dosage: UNK
     Route: 065
  3. CEFTAZIDIME [Suspect]
     Active Substance: CEFTAZIDIME
     Indication: Pneumonia pseudomonal
     Dosage: UNK
     Route: 065

REACTIONS (1)
  - Pathogen resistance [Unknown]
